FAERS Safety Report 5624910-2 (Version None)
Quarter: 2008Q1

REPORT INFORMATION
  Report Type: 
  Country: None (occurrence: None)
  Receive Date: 20080208
  Receipt Date: 20080123
  Transmission Date: 20080703
  Serious: Yes (Life-Threatening, Hospitalization)
  Sender: FDA-Public Use
  Company Number: 23320071798

PATIENT
  Age: 64 Year
  Sex: Male

DRUGS (15)
  1. SOMATULINE [Suspect]
     Indication: ACROMEGALY
     Dosage: 90 MG (4 WEEKLY)  SUBCUTANEOUS
     Route: 058
     Dates: start: 20061218, end: 20071116
  2. ISOSORBIDE DINITRATE [Concomitant]
  3. SPIRONOLACTONE [Concomitant]
  4. GTN-S [Concomitant]
  5. RAMIPRIL [Concomitant]
  6. FUROSEMIDE [Concomitant]
  7. ROSUVASTATIN [Concomitant]
  8. METFORMIN HCL [Concomitant]
  9. CARVEDILOL [Concomitant]
  10. OMEPRAZOLE [Concomitant]
  11. ALLOPURINOL [Concomitant]
  12. COLOSAN [Concomitant]
  13. NOVOLOG MIX 70/30 [Concomitant]
  14. DIGOXIN [Concomitant]
  15. WARFARIN SODIUM [Concomitant]

REACTIONS (1)
  - VENTRICULAR TACHYCARDIA [None]
